FAERS Safety Report 19068227 (Version 1)
Quarter: 2021Q1

REPORT INFORMATION
  Report Type: Spontaneous
  Country: US (occurrence: US)
  Receive Date: 20210326
  Receipt Date: 20210326
  Transmission Date: 20210420
  Serious: Yes (Death)
  Sender: FDA-Public Use
  Company Number: None

PATIENT
  Age: 54 Year
  Sex: Female

DRUGS (1)
  1. ENOXAPARIN PFS 120MG/0.8ML [Suspect]
     Active Substance: ENOXAPARIN
     Route: 058
     Dates: start: 201801

REACTIONS (1)
  - Death [None]

NARRATIVE: CASE EVENT DATE: 20210326
